FAERS Safety Report 4888127-1 (Version None)
Quarter: 2006Q1

REPORT INFORMATION
  Report Type: 
  Country: None (occurrence: None)
  Receive Date: 20060123
  Receipt Date: 20060112
  Transmission Date: 20060701
  Serious: Yes (Hospitalization)
  Sender: FDA-Public Use
  Company Number: US-MERCK-0601USA01734

PATIENT
  Age: 38 Year
  Sex: Male
  Weight: 91 kg

DRUGS (2)
  1. VIOXX [Suspect]
     Indication: FIBROMYALGIA
     Route: 048
     Dates: start: 20030401
  2. VIOXX [Suspect]
     Indication: PAIN
     Route: 048
     Dates: start: 20030401

REACTIONS (7)
  - ADVERSE EVENT [None]
  - ANGINA UNSTABLE [None]
  - ARTERIAL OCCLUSIVE DISEASE [None]
  - CARDIOVASCULAR DISORDER [None]
  - DEPRESSION [None]
  - EMOTIONAL DISTRESS [None]
  - NERVOUS SYSTEM DISORDER [None]
